FAERS Safety Report 25173585 (Version 1)
Quarter: 2025Q2

REPORT INFORMATION
  Report Type: Spontaneous
  Country: US (occurrence: US)
  Receive Date: 20250408
  Receipt Date: 20250408
  Transmission Date: 20250717
  Serious: No
  Sender: BAYER
  Company Number: US-BAYER-2025A044971

PATIENT
  Age: 29 Year
  Sex: Female

DRUGS (3)
  1. MIRENA [Suspect]
     Active Substance: LEVONORGESTREL
     Indication: Contraception
     Dosage: 20?G/DAY
     Route: 015
     Dates: start: 201904
  2. ENBREL [Concomitant]
     Active Substance: ETANERCEPT
  3. ORENCIA [Concomitant]
     Active Substance: ABATACEPT

REACTIONS (1)
  - Rash [None]

NARRATIVE: CASE EVENT DATE: 20250402
